FAERS Safety Report 5852780-6 (Version None)
Quarter: 2008Q3

REPORT INFORMATION
  Report Type: 
  Country: None (occurrence: None)
  Receive Date: 20080814
  Receipt Date: 20070620
  Transmission Date: 20090109
  Serious: No
  Sender: FDA-Public Use
  Company Number: 2007BH005599

PATIENT
  Age: 54 Year
  Sex: Female
  Weight: 68.0396 kg

DRUGS (2)
  1. MIDAZOLAM (MOVA) [Suspect]
     Indication: SEDATION
     Dosage: 20 MG;IV
     Route: 042
     Dates: start: 20070619, end: 20070619
  2. FENTANYL-100 [Concomitant]

REACTIONS (1)
  - DRUG INEFFECTIVE [None]
